FAERS Safety Report 14911154 (Version 1)
Quarter: 2018Q2

REPORT INFORMATION
  Report Type: Report from Study
  Country: None (occurrence: BR)
  Receive Date: 20180518
  Receipt Date: 20180518
  Transmission Date: 20180711
  Serious: Yes (Hospitalization, Other)
  Sender: FDA-Public Use
  Company Number: BR-ABBVIE-18K-020-2357033-00

PATIENT
  Age: 48 Year
  Sex: Male
  Weight: 81.27 kg

DRUGS (6)
  1. SCOPOLAMINE [Concomitant]
     Active Substance: SCOPOLAMINE
     Indication: INTRAOPERATIVE CARE
     Route: 050
  2. AZATHIOPRINE. [Concomitant]
     Active Substance: AZATHIOPRINE
     Indication: PRODUCT USED FOR UNKNOWN INDICATION
  3. ONDANSETRON [Concomitant]
     Active Substance: ONDANSETRON
     Indication: INTRAOPERATIVE CARE
     Route: 050
  4. SIMETHICONE (DIMETHICONE) [Concomitant]
     Active Substance: DIMETHICONE
     Indication: INTRAOPERATIVE CARE
     Route: 050
  5. HUMIRA [Suspect]
     Active Substance: ADALIMUMAB
     Indication: CROHN^S DISEASE
     Route: 058
     Dates: start: 201604
  6. FOLIC ACID. [Concomitant]
     Active Substance: FOLIC ACID
     Indication: INTRAOPERATIVE CARE
     Route: 050

REACTIONS (8)
  - Myelodysplastic syndrome [Unknown]
  - Splenomegaly [Unknown]
  - Varices oesophageal [Unknown]
  - Oesophagitis [Unknown]
  - Bone marrow failure [Unknown]
  - Lymphoma [Recovered/Resolved]
  - Gastric disorder [Unknown]
  - Injection site pain [Recovered/Resolved]

NARRATIVE: CASE EVENT DATE: 2016
